FAERS Safety Report 16917445 (Version 8)
Quarter: 2021Q2

REPORT INFORMATION
  Report Type: Spontaneous
  Country: BR (occurrence: BR)
  Receive Date: 20191015
  Receipt Date: 20210507
  Transmission Date: 20210716
  Serious: Yes (Death, Hospitalization, Other)
  Sender: FDA-Public Use
  Company Number: BR-GLAXOSMITHKLINE-BR2019GSK072491

PATIENT
  Age: 69 Year
  Sex: Female
  Weight: 100 kg

DRUGS (12)
  1. NUCALA [Suspect]
     Active Substance: MEPOLIZUMAB
     Indication: ASTHMA
  2. CONCOR [Suspect]
     Active Substance: BISOPROLOL FUMARATE
     Indication: PRODUCT USED FOR UNKNOWN INDICATION
     Dosage: 1.25 DF, BID
  3. GLIFAGE [Suspect]
     Active Substance: METFORMIN HYDROCHLORIDE
     Indication: PRODUCT USED FOR UNKNOWN INDICATION
     Dosage: 500 MG, QD
  4. AEROLIN [Suspect]
     Active Substance: ALBUTEROL
     Indication: PRODUCT USED FOR UNKNOWN INDICATION
     Dosage: UNK
     Dates: start: 202101
  5. MONTELAIR [Suspect]
     Active Substance: MONTELUKAST SODIUM
     Indication: PRODUCT USED FOR UNKNOWN INDICATION
     Dosage: UNK
  6. BUSONID [Suspect]
     Active Substance: BUDESONIDE
     Indication: PRODUCT USED FOR UNKNOWN INDICATION
     Dosage: UNK UNK, BID
  7. AVAMYS [Suspect]
     Active Substance: FLUTICASONE FUROATE
     Indication: PRODUCT USED FOR UNKNOWN INDICATION
     Dosage: UNK
  8. PREDNISOLONE. [Suspect]
     Active Substance: PREDNISOLONE
     Indication: PRODUCT USED FOR UNKNOWN INDICATION
     Dosage: 20 MG
  9. MONTELUKAST [Suspect]
     Active Substance: MONTELUKAST SODIUM
     Indication: PRODUCT USED FOR UNKNOWN INDICATION
     Dosage: 10 MG, QD
  10. SPIRIVA [Suspect]
     Active Substance: TIOTROPIUM BROMIDE MONOHYDRATE
     Indication: PRODUCT USED FOR UNKNOWN INDICATION
     Dosage: UNK UNK, QD
  11. NUCALA [Suspect]
     Active Substance: MEPOLIZUMAB
     Indication: ASTHMA
     Dosage: 100 MG, UNK
     Dates: start: 20190220, end: 20210204
  12. LOSARTAN. [Suspect]
     Active Substance: LOSARTAN
     Indication: PRODUCT USED FOR UNKNOWN INDICATION
     Dosage: 50 MG, BID

REACTIONS (37)
  - Hyperglycaemia [Unknown]
  - Sneezing [Unknown]
  - Memory impairment [Unknown]
  - Cough [Recovered/Resolved]
  - Nasopharyngitis [Recovered/Resolved]
  - Malaise [Unknown]
  - Dyspnoea [Unknown]
  - Condition aggravated [Recovered/Resolved]
  - Therapy interrupted [Unknown]
  - Dizziness [Recovered/Resolved]
  - Injection site discolouration [Unknown]
  - Corneal transplant [Unknown]
  - Gastric disorder [Unknown]
  - Cataract [Unknown]
  - Pain [Recovered/Resolved]
  - Diabetes mellitus [Unknown]
  - Weight increased [Unknown]
  - Influenza [Unknown]
  - Oxygen saturation decreased [Unknown]
  - Transplant failure [Unknown]
  - Pyrexia [Recovered/Resolved]
  - Asthenia [Unknown]
  - COVID-19 [Recovered/Resolved]
  - Productive cough [Unknown]
  - Decreased appetite [Unknown]
  - Product availability issue [Unknown]
  - Respiratory disorder [Unknown]
  - Myalgia [Unknown]
  - Injection site mass [Unknown]
  - Glucose tolerance impaired [Unknown]
  - Cardiac arrest [Fatal]
  - Coagulopathy [Unknown]
  - Fatigue [Unknown]
  - Hypersensitivity [Unknown]
  - Osteoarthritis [Unknown]
  - Dry skin [Unknown]
  - Incorrect product administration duration [Unknown]

NARRATIVE: CASE EVENT DATE: 20200202
